FAERS Safety Report 24218696 (Version 1)
Quarter: 2024Q3

REPORT INFORMATION
  Report Type: Spontaneous
  Country: CN (occurrence: CN)
  Receive Date: 20240816
  Receipt Date: 20240816
  Transmission Date: 20241017
  Serious: Yes (Hospitalization, Other)
  Sender: TEVA
  Company Number: CN-TEVA-VS-3231484

PATIENT
  Age: 54 Year
  Sex: Male

DRUGS (4)
  1. RASAGILINE MESYLATE [Suspect]
     Active Substance: RASAGILINE MESYLATE
     Indication: Parkinson^s disease
     Dosage: PERORAL
     Route: 048
     Dates: start: 20240617, end: 20240727
  2. TRIHEXYPHENIDYL [Suspect]
     Active Substance: TRIHEXYPHENIDYL
     Indication: Parkinson^s disease
     Dosage: TIME INTERVAL: 0.33333333 DAYS
     Route: 048
     Dates: start: 20240617, end: 20240724
  3. BENSERAZIDE HYDROCHLORIDE\LEVODOPA [Suspect]
     Active Substance: BENSERAZIDE HYDROCHLORIDE\LEVODOPA
     Indication: Parkinson^s disease
     Dosage: 0.25 (UNITS NOT SPECIFIED)
     Route: 048
     Dates: start: 20240617, end: 20240724
  4. PIRIBEDIL [Suspect]
     Active Substance: PIRIBEDIL
     Indication: Parkinson^s disease
     Dosage: TIME INTERVAL: 0.33333333 DAYS: SUSTAINED RELEASE TABLETS
     Route: 048
     Dates: start: 20240617, end: 20240727

REACTIONS (4)
  - Rash [Recovered/Resolved]
  - Pyrexia [Unknown]
  - Mental disorder [Unknown]
  - Tremor [Unknown]

NARRATIVE: CASE EVENT DATE: 20240718
